FAERS Safety Report 4361005-2 (Version None)
Quarter: 2004Q2

REPORT INFORMATION
  Report Type: 
  Country: None (occurrence: None)
  Receive Date: 20040517
  Receipt Date: 20040503
  Transmission Date: 20050107
  Serious: Yes (Death)
  Sender: FDA-Public Use
  Company Number: 167-20785-04050120

PATIENT
  Sex: 0

DRUGS (3)
  1. THALIDOMIDE (THALIDOMIDE) (UNKNOWN) [Suspect]
     Indication: MULTIPLE MYELOMA
     Dosage: 50-800 MG MAX, QD, ORAL, INCREASE EVERY TWO WEEKS
     Route: 048
  2. MELPHALAN (MELPHALAN) (UNKNOWN) [Suspect]
     Indication: MULTIPLE MYELOMA
     Dosage: 7 MG/M2, QD, ORAL, 4 DAYS AND REPEATED EVERY 28 DAYS
     Route: 048
  3. PREDNISOLONE [Suspect]
     Indication: MULTIPLE MYELOMA
     Dosage: 20 MG, BD, ORAL, 4 DAYS AND REPEATED EVERY 28 DAYS
     Route: 048

REACTIONS (2)
  - DEEP VEIN THROMBOSIS [None]
  - PULMONARY EMBOLISM [None]
